FAERS Safety Report 16396802 (Version 7)
Quarter: 2022Q4

REPORT INFORMATION
  Report Type: Report from Study
  Country: BR (occurrence: None)
  Receive Date: 20190606
  Receipt Date: 20221202
  Transmission Date: 20230113
  Serious: Yes (Other)
  Sender: FDA-Public Use
  Company Number: BR-MERCK HEALTHCARE KGAA-9094538

PATIENT
  Age: 32 Year
  Sex: Female

DRUGS (3)
  1. REBIF [Suspect]
     Active Substance: INTERFERON BETA-1A
     Indication: Multiple sclerosis
     Route: 058
     Dates: start: 20150511, end: 20160513
  2. REBIF [Suspect]
     Active Substance: INTERFERON BETA-1A
     Route: 058
     Dates: start: 20160520
  3. INTERFERON BETA-1A [Suspect]
     Active Substance: INTERFERON BETA-1A
     Indication: Multiple sclerosis
     Dosage: THERAPY START DATE : 07 OCT 2019
     Route: 058

REACTIONS (15)
  - Caesarean section [Recovered/Resolved]
  - Pre-eclampsia [Recovered/Resolved]
  - Shock haemorrhagic [Recovered/Resolved]
  - Haemorrhage [Unknown]
  - Coagulopathy [Unknown]
  - Headache [Unknown]
  - Injection site haemorrhage [Unknown]
  - Generalised anxiety disorder [Not Recovered/Not Resolved]
  - Nasopharyngitis [Unknown]
  - Postprandial hypoglycaemia [Recovering/Resolving]
  - Contusion [Unknown]
  - Anaemia [Recovered/Resolved]
  - Live birth [Recovered/Resolved]
  - Breast feeding [Not Recovered/Not Resolved]
  - Maternal exposure during pregnancy [Recovered/Resolved]

NARRATIVE: CASE EVENT DATE: 20171201
